FAERS Safety Report 17965728 (Version 3)
Quarter: 2020Q3

REPORT INFORMATION
  Report Type: Spontaneous
  Country: US (occurrence: US)
  Receive Date: 20200701
  Receipt Date: 20200819
  Transmission Date: 20201103
  Serious: No
  Sender: FDA-Public Use
  Company Number: US-JNJFOC-20200632343

PATIENT
  Age: 78 Year
  Sex: Female
  Weight: 63.56 kg

DRUGS (1)
  1. WOMENS ROGAINE UNSCENTED [Suspect]
     Active Substance: MINOXIDIL
     Indication: ALOPECIA
     Dosage: CAPFUL ?THE PRODUCT WAS LAST ADMINISTERED ON 20/JUN/2020.
     Route: 061
     Dates: start: 20200515

REACTIONS (4)
  - Trichorrhexis [Not Recovered/Not Resolved]
  - Alopecia [Not Recovered/Not Resolved]
  - Product use in unapproved indication [Unknown]
  - Overdose [Unknown]

NARRATIVE: CASE EVENT DATE: 20200515
